FAERS Safety Report 10270648 (Version 4)
Quarter: 2016Q1

REPORT INFORMATION
  Report Type: Spontaneous
  Country: FR (occurrence: FR)
  Receive Date: 20140701
  Receipt Date: 20160314
  Transmission Date: 20160525
  Serious: Yes (Hospitalization, Other)
  Sender: FDA-Public Use
  Company Number: FR-BAYER-2014-094601

PATIENT
  Age: 42 Year
  Sex: Female
  Weight: 70 kg

DRUGS (9)
  1. SPIFEN [Concomitant]
     Active Substance: IBUPROFEN
     Indication: SINUS DISORDER
     Dosage: UNK
     Dates: start: 20120720
  2. IZILOX [Suspect]
     Active Substance: MOXIFLOXACIN HYDROCHLORIDE
     Indication: SINUS DISORDER
     Dosage: 1 TABLET IN THE EVENING
     Dates: start: 20120720, end: 20120730
  3. BECLOMETASONE DIPROPIONATE [Concomitant]
     Active Substance: BECLOMETHASONE DIPROPIONATE
     Dosage: UNK
     Dates: start: 20131129
  4. CONTRAMAL [Concomitant]
     Active Substance: TRAMADOL HYDROCHLORIDE
  5. TRIFLUCAN [Concomitant]
     Active Substance: FLUCONAZOLE
     Indication: SINUSITIS FUNGAL
     Dosage: UNK
     Dates: start: 20120720
  6. IZILOX [Suspect]
     Active Substance: MOXIFLOXACIN HYDROCHLORIDE
     Indication: SINUS DISORDER
     Dosage: UNK
     Dates: start: 20121023, end: 20121024
  7. IZILOX [Suspect]
     Active Substance: MOXIFLOXACIN HYDROCHLORIDE
     Indication: SINUS DISORDER
     Dosage: 1 DF, QD
     Dates: start: 20131129
  8. SOLUPRED [PREDNISOLONE] [Concomitant]
     Active Substance: PREDNISOLONE
     Dosage: 20 MG, UNK
     Dates: start: 20121023
  9. IZILOX [Suspect]
     Active Substance: MOXIFLOXACIN HYDROCHLORIDE
     Indication: SINUS DISORDER
     Dosage: UNK
     Dates: start: 20120822, end: 20120828

REACTIONS (25)
  - Depression [None]
  - Pain in jaw [None]
  - Musculoskeletal pain [None]
  - Diarrhoea [Not Recovered/Not Resolved]
  - Migraine with aura [None]
  - Abdominal pain [Not Recovered/Not Resolved]
  - Visual impairment [None]
  - Urinary incontinence [None]
  - Decreased appetite [None]
  - Palpitations [None]
  - Blindness transient [None]
  - Product use issue [None]
  - Migraine [None]
  - Drug ineffective [None]
  - Headache [None]
  - Fatigue [None]
  - Mental disorder [None]
  - Urinary tract infection [None]
  - Vomiting [None]
  - Autonomic nervous system imbalance [None]
  - Vertigo [None]
  - Sleep disorder [None]
  - Anal incontinence [None]
  - Tinnitus [None]
  - Dyspnoea exertional [None]

NARRATIVE: CASE EVENT DATE: 2012
